FAERS Safety Report 23364842 (Version 1)
Quarter: 2024Q1

REPORT INFORMATION
  Report Type: Spontaneous
  Country: FR (occurrence: None)
  Receive Date: 20240104
  Receipt Date: 20240104
  Transmission Date: 20240409
  Serious: Yes (Other)
  Sender: FDA-Public Use
  Company Number: 2023A294156

PATIENT
  Age: 57 Year
  Sex: Male
  Weight: 73 kg

DRUGS (5)
  1. IMFINZI [Suspect]
     Active Substance: DURVALUMAB
     Indication: Cholangiocarcinoma
     Route: 042
     Dates: start: 20221104, end: 20231013
  2. EUPANTOL [Concomitant]
     Active Substance: PANTOPRAZOLE SODIUM
  3. PAROXETINE HYDROCHLORIDE [Concomitant]
     Active Substance: PAROXETINE HYDROCHLORIDE\PAROXETINE HYDROCHLORIDE ANHYDROUS
  4. ALPRAZOLAM [Concomitant]
     Active Substance: ALPRAZOLAM
  5. QUESTRAN [Concomitant]
     Active Substance: CHOLESTYRAMINE

REACTIONS (1)
  - Lichen planus [Recovering/Resolving]

NARRATIVE: CASE EVENT DATE: 20230922
